FAERS Safety Report 16294797 (Version 1)
Quarter: 2019Q2

REPORT INFORMATION
  Report Type: Spontaneous
  Country: US (occurrence: US)
  Receive Date: 20190509
  Receipt Date: 20190509
  Transmission Date: 20190711
  Serious: No
  Sender: FDA-Public Use
  Company Number: US-ROCHE-2213811

PATIENT
  Sex: Female

DRUGS (8)
  1. TRAMADOL. [Concomitant]
     Active Substance: TRAMADOL
  2. ALBUTEROL [SALBUTAMOL] [Concomitant]
     Active Substance: ALBUTEROL
  3. ESBRIET [Suspect]
     Active Substance: PIRFENIDONE
     Indication: IDIOPATHIC PULMONARY FIBROSIS
  4. LORATADINE. [Concomitant]
     Active Substance: LORATADINE
  5. PREDNISONE. [Concomitant]
     Active Substance: PREDNISONE
  6. ESBRIET [Suspect]
     Active Substance: PIRFENIDONE
     Indication: RESPIRATORY TRACT MALFORMATION
     Route: 048
     Dates: start: 20150912
  7. LUTEIN [XANTOFYL] [Concomitant]
  8. MELOXICAM. [Concomitant]
     Active Substance: MELOXICAM

REACTIONS (1)
  - Fall [Unknown]
